FAERS Safety Report 10307531 (Version 1)
Quarter: 2014Q3

REPORT INFORMATION
  Report Type: Spontaneous
  Country: US (occurrence: None)
  Receive Date: 20140714
  Receipt Date: 20140714
  Transmission Date: 20150326
  Serious: No
  Sender: FDA-Public Use
  Company Number: None

PATIENT
  Age: 49 Year
  Sex: Female
  Weight: 63.5 kg

DRUGS (1)
  1. MIRALAX [Suspect]
     Active Substance: POLYETHYLENE GLYCOL 3350
     Indication: CONSTIPATION
     Dosage: TAKEN BY MOUTH
     Dates: start: 20140106, end: 20140711

REACTIONS (2)
  - Rectal discharge [None]
  - Secretion discharge [None]

NARRATIVE: CASE EVENT DATE: 20140710
